FAERS Safety Report 21557024 (Version 1)
Quarter: 2022Q4

REPORT INFORMATION
  Report Type: Spontaneous
  Country: US (occurrence: US)
  Receive Date: 20221104
  Receipt Date: 20221104
  Transmission Date: 20230113
  Serious: No
  Sender: FDA-Public Use
  Company Number: US-BRISTOL-MYERS SQUIBB COMPANY-2022-132960

PATIENT
  Age: 81 Year
  Sex: Female
  Weight: 72.57 kg

DRUGS (2)
  1. KENALOG [Suspect]
     Active Substance: TRIAMCINOLONE ACETONIDE
     Indication: Cystitis interstitial
     Dosage: DOSE : UNAVAILABLE;     FREQ : 2 VIALS INJECTED INTO LESION ONCE EVERY 6 OR 7 MONTHS
     Route: 026
  2. FLOVENT [Concomitant]
     Active Substance: FLUTICASONE PROPIONATE
     Indication: Product used for unknown indication

REACTIONS (1)
  - Intentional product use issue [Unknown]
